FAERS Safety Report 4463770-2 (Version None)
Quarter: 2004Q3

REPORT INFORMATION
  Report Type: 
  Country: None (occurrence: None)
  Receive Date: 20040929
  Receipt Date: 20040920
  Transmission Date: 20050211
  Serious: Yes (Hospitalization)
  Sender: FDA-Public Use
  Company Number: RENA-11167

PATIENT
  Age: 50 Year
  Sex: Female

DRUGS (7)
  1. RENAGEL [Suspect]
     Indication: HYPERPHOSPHATAEMIA
     Dosage: 0.6 G DAILY PO
     Route: 048
     Dates: start: 20040507, end: 20040514
  2. ORALVITE [Concomitant]
  3. ETALPHA [Concomitant]
  4. FUROSEMIDE [Concomitant]
  5. KALCITENA [Concomitant]
  6. COZAAR [Concomitant]
  7. LESCOL [Concomitant]

REACTIONS (4)
  - DIZZINESS [None]
  - NAUSEA [None]
  - SYNCOPE [None]
  - TRANSIENT ISCHAEMIC ATTACK [None]
